FAERS Safety Report 6851100-8 (Version None)
Quarter: 2010Q3

REPORT INFORMATION
  Report Type: 
  Country: None (occurrence: None)
  Receive Date: 20100716
  Receipt Date: 20071029
  Transmission Date: 20110219
  Serious: No
  Sender: FDA-Public Use
  Company Number: US-PFIZER INC-2007091508

PATIENT
  Sex: Male
  Weight: 72.727 kg

DRUGS (6)
  1. CHANTIX [Suspect]
     Indication: SMOKING CESSATION THERAPY
     Dates: start: 20071025
  2. ACETYLSALICYLIC ACID [Concomitant]
  3. LOPRESSOR [Concomitant]
  4. AMBIEN [Concomitant]
  5. ALL OTHER THERAPEUTIC PRODUCTS [Concomitant]
  6. ZOCOR [Concomitant]

REACTIONS (2)
  - CONSTIPATION [None]
  - PAIN [None]
